FAERS Safety Report 5743462-X (Version None)
Quarter: 2008Q2

REPORT INFORMATION
  Report Type: 
  Country: None (occurrence: None)
  Receive Date: 20080519
  Receipt Date: 20080519
  Transmission Date: 20081010
  Serious: Yes (Other)
  Sender: FDA-Public Use
  Company Number: None

PATIENT
  Age: 36 Year
  Sex: Male
  Weight: 162.3877 kg

DRUGS (1)
  1. DIGITEK .25 MG MYLAN PHARMACEUTICALS [Suspect]
     Indication: CARDIAC FAILURE CONGESTIVE
     Dosage: .25 MG 1XDAY PO
     Route: 048
     Dates: start: 20051123, end: 20080513

REACTIONS (7)
  - AMNESIA [None]
  - DIZZINESS [None]
  - DRUG LEVEL INCREASED [None]
  - MALAISE [None]
  - NAUSEA [None]
  - PHARMACEUTICAL PRODUCT COMPLAINT [None]
  - SLEEP DISORDER [None]
